FAERS Safety Report 24556731 (Version 2)
Quarter: 2024Q4

REPORT INFORMATION
  Report Type: Report from Study
  Country: CA (occurrence: CA)
  Receive Date: 20241028
  Receipt Date: 20241105
  Transmission Date: 20250115
  Serious: Yes (Other)
  Sender: REGENERON
  Company Number: CA-BAYER-2024A152982

PATIENT
  Sex: Male

DRUGS (3)
  1. EYLEA [Suspect]
     Active Substance: AFLIBERCEPT
     Indication: Diabetic retinal oedema
     Dosage: UNK, 40 MG/ML, SOLUTION FOR INJECTION
     Dates: start: 20230427
  2. EYLEA [Suspect]
     Active Substance: AFLIBERCEPT
     Dosage: UNK, 40 MG/ML, SOLUTION FOR INJECTION
     Dates: start: 20230427
  3. EYLEA [Suspect]
     Active Substance: AFLIBERCEPT
     Dosage: UNK, 40 MG/ML, SOLUTION FOR INJECTION
     Dates: start: 20231019

REACTIONS (1)
  - Eye laser surgery [Unknown]

NARRATIVE: CASE EVENT DATE: 20231019
